FAERS Safety Report 8109925-7 (Version None)
Quarter: 2012Q1

REPORT INFORMATION
  Report Type: 
  Country: None (occurrence: None)
  Receive Date: 20120202
  Receipt Date: 20120122
  Transmission Date: 20120608
  Serious: No
  Sender: FDA-Public Use
  Company Number: US-AMGEN-USASP2012004922

PATIENT
  Age: 50 Year
  Sex: Female

DRUGS (2)
  1. ENBREL [Suspect]
     Indication: RHEUMATOID ARTHRITIS
     Dosage: UNK
     Dates: start: 20111215, end: 20120115
  2. VITAMIN B12                        /00056201/ [Concomitant]
     Dosage: UNK

REACTIONS (26)
  - BURNING SENSATION [None]
  - SKIN EXFOLIATION [None]
  - DRY SKIN [None]
  - SKIN HYPERTROPHY [None]
  - INSOMNIA [None]
  - FEELING ABNORMAL [None]
  - HYPERSOMNIA [None]
  - INJECTION SITE WARMTH [None]
  - GAIT DISTURBANCE [None]
  - BLEEDING TIME PROLONGED [None]
  - UNEVALUABLE EVENT [None]
  - MACULE [None]
  - SKIN HAEMORRHAGE [None]
  - DECREASED APPETITE [None]
  - DIARRHOEA [None]
  - ERYTHEMA [None]
  - LACERATION [None]
  - IMPAIRED HEALING [None]
  - MEASLES [None]
  - INJECTION SITE SWELLING [None]
  - INJECTION SITE HAEMATOMA [None]
  - MELANOCYTIC NAEVUS [None]
  - INJECTION SITE IRRITATION [None]
  - FATIGUE [None]
  - ANIMAL SCRATCH [None]
  - ABDOMINAL PAIN UPPER [None]
